FAERS Safety Report 6771231-0 (Version None)
Quarter: 2010Q2

REPORT INFORMATION
  Report Type: 
  Country: None (occurrence: None)
  Receive Date: 20100616
  Receipt Date: 20100607
  Transmission Date: 20101027
  Serious: Yes (Hospitalization)
  Sender: FDA-Public Use
  Company Number: US-JNJFOC-20091101961

PATIENT
  Sex: Female

DRUGS (21)
  1. REMICADE [Suspect]
     Indication: RHEUMATOID ARTHRITIS
     Route: 042
     Dates: start: 20090129
  2. REMICADE [Suspect]
     Route: 042
     Dates: start: 20090129
  3. REMICADE [Suspect]
     Route: 042
     Dates: start: 20090129
  4. ALBUTEROL [Concomitant]
     Route: 055
  5. ASPIRIN [Concomitant]
  6. CALCIUM WITH VITAMIN D [Concomitant]
  7. COUMADIN [Concomitant]
     Indication: ATRIAL FIBRILLATION
  8. FOLIC ACID [Concomitant]
  9. FUROSEMIDE [Concomitant]
  10. HYDROCODONE BITARTRATE AND ACETAMINOPHEN [Concomitant]
     Dosage: 1-2 TABLETS
  11. POTASSIUM CHLORIDE [Concomitant]
  12. METHOTREXATE [Concomitant]
     Indication: RHEUMATOID ARTHRITIS
  13. METOPROLOL [Concomitant]
  14. PREDNISONE [Concomitant]
     Indication: RHEUMATOID ARTHRITIS
  15. PROBENECID [Concomitant]
  16. PROTONIX [Concomitant]
  17. SALSALATE [Concomitant]
  18. SPIRIVA [Concomitant]
  19. TEARS NATURALE [Concomitant]
  20. TYLENOL (CAPLET) [Concomitant]
     Dosage: 2 TABLETS EVERY 4-6 HOURS P.R.N.
  21. WELCHOL [Concomitant]
     Dosage: 3 TABLETS TWICE DAILY

REACTIONS (6)
  - BLOOD TEST ABNORMAL [None]
  - CHRONIC OBSTRUCTIVE PULMONARY DISEASE [None]
  - IMMUNODEFICIENCY [None]
  - INFLUENZA LIKE ILLNESS [None]
  - PNEUMONIA STREPTOCOCCAL [None]
  - RESPIRATORY DISTRESS [None]
